FAERS Safety Report 7115092-9 (Version None)
Quarter: 2010Q4

REPORT INFORMATION
  Report Type: 
  Country: None (occurrence: None)
  Receive Date: 20101122
  Receipt Date: 20101109
  Transmission Date: 20110411
  Serious: Yes (Hospitalization)
  Sender: FDA-Public Use
  Company Number: CA-CELGENEUS-028-21880-10111227

PATIENT
  Sex: Female

DRUGS (4)
  1. REVLIMID [Suspect]
     Indication: MULTIPLE MYELOMA
     Route: 048
     Dates: start: 20101029, end: 20101104
  2. TOBRAMYCIN [Concomitant]
     Route: 065
     Dates: start: 20101101
  3. BENADRYL [Concomitant]
     Route: 065
     Dates: start: 20101101
  4. TYLENOL (CAPLET) [Concomitant]
     Route: 065
     Dates: start: 20101101

REACTIONS (5)
  - PYREXIA [None]
  - RASH [None]
  - STOMATITIS [None]
  - SWELLING FACE [None]
  - SWOLLEN TONGUE [None]
